FAERS Safety Report 7582373-4 (Version None)
Quarter: 2011Q2

REPORT INFORMATION
  Report Type: 
  Country: None (occurrence: None)
  Receive Date: 20110630
  Receipt Date: 20110624
  Transmission Date: 20111010
  Serious: Yes (Other)
  Sender: FDA-Public Use
  Company Number: US-JNJFOC-20100600888

PATIENT
  Sex: Male

DRUGS (3)
  1. LEVAQUIN [Suspect]
     Route: 048
  2. LEVAQUIN [Suspect]
     Indication: PRODUCT USED FOR UNKNOWN INDICATION
     Route: 048
  3. LEVAQUIN [Suspect]
     Route: 042

REACTIONS (6)
  - TENDON INJURY [None]
  - TENDONITIS [None]
  - TENOSYNOVITIS STENOSANS [None]
  - TENDON DISORDER [None]
  - EPICONDYLITIS [None]
  - ROTATOR CUFF SYNDROME [None]
